FAERS Safety Report 9262818 (Version 2)
Quarter: 2013Q2

REPORT INFORMATION
  Report Type: Report from Study
  Country: IT (occurrence: IT)
  Receive Date: 20130430
  Receipt Date: 20130510
  Transmission Date: 20140414
  Serious: Yes (Death, Life-Threatening, Hospitalization)
  Sender: FDA-Public Use
  Company Number: PHHO2013IT005655

PATIENT
  Age: 63 Year
  Sex: Male
  Weight: 90 kg

DRUGS (11)
  1. DIOVAN [Suspect]
     Indication: HYPERTENSION
     Dosage: 40 MG, UNK
     Route: 048
     Dates: start: 20090109, end: 20130422
  2. COUMADIN [Suspect]
     Indication: THROMBOSIS PROPHYLAXIS
     Dosage: UNK
     Route: 048
     Dates: start: 20130220, end: 20130422
  3. CALCITRIOLO [Concomitant]
     Indication: HYPERTHYROIDISM
     Dosage: 0.25 UG, UNK
     Route: 048
     Dates: start: 20110714, end: 20130422
  4. ALMARYTM [Concomitant]
     Indication: ATRIAL FLUTTER
     Dosage: 100 MG, UNK
     Route: 048
     Dates: start: 20130329, end: 20130422
  5. FOLIDEX [Concomitant]
     Indication: ANAEMIA
     Dosage: 400 MG, UNK
     Route: 048
     Dates: start: 20110615, end: 20130422
  6. LANSOPRAZOLO [Concomitant]
     Indication: GASTRITIS PROPHYLAXIS
     Dosage: 15 MG, UNK
     Route: 048
     Dates: start: 20110601, end: 20130422
  7. LASIX [Concomitant]
     Indication: HYPERTENSION
     Dosage: 62.5 MG, UNK
     Route: 048
     Dates: start: 20130412, end: 20130422
  8. LEVEMIR [Concomitant]
     Indication: DIABETES MELLITUS
     Dosage: 16 IU, UNK
     Route: 058
     Dates: start: 20130412, end: 20130422
  9. NOVORAPID [Concomitant]
     Indication: DIABETES MELLITUS
     Dosage: 8 IU, UNK
     Route: 058
     Dates: start: 20130412
  10. CALCIO CARBONATO [Concomitant]
     Indication: HYPERPARATHYROIDISM
     Dosage: 1000 MG, UNK
     Route: 048
     Dates: start: 20130111, end: 20130422
  11. ZYLORIC [Concomitant]
     Indication: HYPERURICAEMIA
     Dosage: 150 MG, UNK
     Route: 048
     Dates: end: 20130422

REACTIONS (1)
  - Cerebral haemorrhage [Fatal]
